FAERS Safety Report 6694379-8 (Version None)
Quarter: 2010Q2

REPORT INFORMATION
  Report Type: 
  Country: None (occurrence: None)
  Receive Date: 20100423
  Receipt Date: 20100218
  Transmission Date: 20101027
  Serious: Yes (Death)
  Sender: FDA-Public Use
  Company Number: KR-PFIZER INC-2010022264

PATIENT
  Age: 65 Year
  Sex: Male
  Weight: 66.8 kg

DRUGS (11)
  1. IRINOTECAN HCL [Suspect]
     Indication: COLORECTAL CANCER METASTATIC
     Dosage: 180 MG/M2, 1 IN 2 WK
     Route: 042
     Dates: start: 20100105
  2. CETUXIMAB [Suspect]
     Indication: COLORECTAL CANCER METASTATIC
     Dosage: 500 MG/M2, 1 IN 2 WK
     Route: 042
     Dates: start: 20100105
  3. FLUOROURACIL [Suspect]
     Indication: COLORECTAL CANCER METASTATIC
     Dosage: 400 MG/M2, UNK
     Route: 040
     Dates: start: 20100105
  4. FLUOROURACIL [Suspect]
     Dosage: 2400 MG/M2 46 HRS INFUSION (2800 MG/M2, 1 IN2 WK)
     Route: 041
     Dates: start: 20100105
  5. FOLINIC ACID [Suspect]
     Indication: COLORECTAL CANCER METASTATIC
     Dosage: 400 MG/M2, 1 IN 2 WK
     Route: 042
     Dates: start: 20100105
  6. MOLSIDOMINE [Concomitant]
     Indication: PRINZMETAL ANGINA
     Dosage: 4 MG, UNK
     Route: 048
     Dates: start: 20030614, end: 20100207
  7. LACIDIPINE [Concomitant]
     Indication: HYPERTENSION
     Dosage: 4 MG, UNK
     Route: 048
     Dates: start: 20030614, end: 20100207
  8. DILTIAZEM HYDROCHLORIDE [Concomitant]
     Indication: PRINZMETAL ANGINA
     Dosage: 180 MG, UNK
     Route: 048
     Dates: start: 20030610, end: 20100207
  9. NICORANDIL [Concomitant]
     Indication: PRINZMETAL ANGINA
     Dosage: 5 MG, UNK
     Route: 048
     Dates: start: 20030624, end: 20100207
  10. ISOSORBIDE MONONITRATE [Concomitant]
     Indication: PRINZMETAL ANGINA
     Dosage: 60 MG, UNK
     Route: 048
     Dates: start: 20030614, end: 20100207
  11. LOPERAMIDE OXIDE [Concomitant]
     Indication: DIARRHOEA
     Dosage: UNK
     Route: 048
     Dates: start: 20091230, end: 20100207

REACTIONS (1)
  - DEATH [None]
